FAERS Safety Report 17881520 (Version 1)
Quarter: 2020Q2

REPORT INFORMATION
  Report Type: Report from Study
  Country: US (occurrence: US)
  Receive Date: 20200610
  Receipt Date: 20200610
  Transmission Date: 20200714
  Serious: Yes (Death, Hospitalization)
  Sender: FDA-Public Use
  Company Number: US-ACTELION-A-US2020-204949

PATIENT
  Sex: Female

DRUGS (3)
  1. FUROSEMIDE. [Concomitant]
     Active Substance: FUROSEMIDE
  2. UPTRAVI [Suspect]
     Active Substance: SELEXIPAG
     Indication: PULMONARY ARTERIAL HYPERTENSION
     Dosage: 800 MCG, BID
     Route: 048
     Dates: start: 20200325, end: 20200525
  3. UPTRAVI [Suspect]
     Active Substance: SELEXIPAG
     Dosage: UNK
     Route: 048

REACTIONS (8)
  - General physical health deterioration [Not Recovered/Not Resolved]
  - Pain in extremity [Unknown]
  - Swelling [Unknown]
  - Pulmonary veno-occlusive disease [Fatal]
  - Abdominal distension [Unknown]
  - Fluid retention [Unknown]
  - Oedema [Unknown]
  - Fluid overload [Unknown]
